FAERS Safety Report 8053500-X (Version None)
Quarter: 2012Q1

REPORT INFORMATION
  Report Type: 
  Country: None (occurrence: None)
  Receive Date: 20120118
  Receipt Date: 20120109
  Transmission Date: 20120608
  Serious: Yes (Other)
  Sender: FDA-Public Use
  Company Number: BR-ELI_LILLY_AND_COMPANY-BR201201002598

PATIENT
  Sex: Female
  Weight: 63 kg

DRUGS (3)
  1. TOPIRAMATE [Concomitant]
     Dosage: UNK, UNKNOWN
     Route: 048
  2. BYETTA [Suspect]
     Dosage: UNK UNK, QD
     Route: 058
  3. CLONAZEPAM [Concomitant]
     Dosage: UNK, UNKNOWN
     Route: 048

REACTIONS (8)
  - DYSSTASIA [None]
  - SKIN DISCOLOURATION [None]
  - DIZZINESS [None]
  - GENERAL SYMPTOM [None]
  - DIARRHOEA [None]
  - OFF LABEL USE [None]
  - INAPPROPRIATE SCHEDULE OF DRUG ADMINISTRATION [None]
  - VOMITING [None]
